FAERS Safety Report 9258698 (Version 1)
Quarter: 2013Q2

REPORT INFORMATION
  Report Type: Spontaneous
  Country: ES (occurrence: ES)
  Receive Date: 20130426
  Receipt Date: 20130426
  Transmission Date: 20140414
  Serious: Yes (Other)
  Sender: FDA-Public Use
  Company Number: ES-VERTEX PHARMACEUTICALS INC.-2013-005432

PATIENT
  Age: 30 Year
  Sex: Male
  Weight: 72.5 kg

DRUGS (9)
  1. INCIVO [Suspect]
     Indication: HEPATITIS C
     Dosage: 750 MG, TID
     Route: 065
  2. RIBAVIRIN [Suspect]
     Indication: HEPATITIS C
     Dosage: DOSAGE FORM: UNSPECIFIED
     Route: 065
  3. PEGINTERFERON ALFA [Suspect]
     Indication: HEPATITIS C
     Dosage: DOSAGE FORM: UNSPECIFIED
     Route: 065
  4. OLANZAPINE [Concomitant]
     Indication: ADJUSTMENT DISORDER WITH MIXED ANXIETY AND DEPRESSED MOOD
     Dosage: DOSAGE FORM: UNKNOWN
     Route: 065
  5. MIRTAZAPINE [Concomitant]
     Indication: ADJUSTMENT DISORDER WITH MIXED ANXIETY AND DEPRESSED MOOD
     Dosage: DOSAGE FORM: UNKNOWN
     Route: 065
  6. ESCITALOPRAM [Concomitant]
     Indication: ADJUSTMENT DISORDER WITH MIXED ANXIETY AND DEPRESSED MOOD
     Dosage: DOSAGE FORM: UNKNOWN
     Route: 065
  7. QUETIAPINE [Concomitant]
     Indication: ADJUSTMENT DISORDER WITH MIXED ANXIETY AND DEPRESSED MOOD
     Dosage: DOSAGE FORM: UNKNOWN
     Route: 065
  8. KIDEVSA (ABACAVIR/LAMIVUDINE) [Concomitant]
     Indication: HIV INFECTION
     Dosage: DOSAGE FORM: UNKNOWN
     Route: 065
  9. ATAZANAVIR [Concomitant]
     Indication: HIV INFECTION
     Dosage: DOSAGE FORM: UNKNOWN
     Route: 065

REACTIONS (6)
  - Myalgia [Recovered/Resolved]
  - Skin lesion [Unknown]
  - Weight decreased [Unknown]
  - Pyrexia [Unknown]
  - Headache [Recovered/Resolved]
  - Off label use [Unknown]
